FAERS Safety Report 4626224-6 (Version None)
Quarter: 2005Q2

REPORT INFORMATION
  Report Type: 
  Country: None (occurrence: None)
  Receive Date: 20050331
  Receipt Date: 20040614
  Transmission Date: 20051028
  Serious: Yes (Other)
  Sender: FDA-Public Use
  Company Number: 200412921BCC

PATIENT
  Age: 67 Year
  Sex: Male
  Weight: 94.3482 kg

DRUGS (2)
  1. ALEVE [Suspect]
     Indication: ARTHRITIS
     Dosage: 440 MG, BID, ORAL;  220 MG, QD, ORAL
     Route: 048
     Dates: start: 19950101, end: 20020101
  2. ALEVE [Suspect]
     Indication: ARTHRITIS
     Dosage: 440 MG, BID, ORAL;  220 MG, QD, ORAL
     Route: 048
     Dates: start: 20040601

REACTIONS (1)
  - HAEMATOCHEZIA [None]
